FAERS Safety Report 24618501 (Version 1)
Quarter: 2024Q4

REPORT INFORMATION
  Report Type: Spontaneous
  Country: US (occurrence: None)
  Receive Date: 20241113
  Receipt Date: 20241113
  Transmission Date: 20250114
  Serious: No
  Sender: Public
  Company Number: None

PATIENT
  Age: 72 Year
  Sex: Male

DRUGS (1)
  1. TIRZEPATIDE [Suspect]
     Active Substance: TIRZEPATIDE
     Indication: Diabetes mellitus
     Dosage: 2.50 MG 4 TIMES A DAY SUBCUTANEOUS
     Route: 058
     Dates: start: 20240828, end: 20240916

REACTIONS (1)
  - Rash [None]

NARRATIVE: CASE EVENT DATE: 20240916
